FAERS Safety Report 25621875 (Version 2)
Quarter: 2025Q3

REPORT INFORMATION
  Report Type: Spontaneous
  Country: EU (occurrence: EU)
  Receive Date: 20250730
  Receipt Date: 20250805
  Transmission Date: 20251020
  Serious: Yes (Hospitalization, Other)
  Sender: AUROBINDO
  Company Number: EU-KRKA-PL2025K12747LIT

PATIENT
  Age: 35 Year
  Sex: Male

DRUGS (6)
  1. CLOPIDOGREL [Suspect]
     Active Substance: CLOPIDOGREL BISULFATE
     Indication: Antiplatelet therapy
     Route: 065
  2. CLOPIDOGREL [Suspect]
     Active Substance: CLOPIDOGREL BISULFATE
     Indication: Ischaemic skin ulcer
  3. CLOPIDOGREL [Suspect]
     Active Substance: CLOPIDOGREL BISULFATE
     Indication: Cerebral ischaemia
  4. ASPIRIN [Suspect]
     Active Substance: ASPIRIN
     Indication: Antiplatelet therapy
     Route: 065
  5. ASPIRIN [Suspect]
     Active Substance: ASPIRIN
     Indication: Ischaemic skin ulcer
  6. ASPIRIN [Suspect]
     Active Substance: ASPIRIN
     Indication: Cerebral ischaemia

REACTIONS (5)
  - Basal ganglia haemorrhage [Recovering/Resolving]
  - Hemiparesis [Recovering/Resolving]
  - Condition aggravated [Recovering/Resolving]
  - Haemorrhagic transformation stroke [Recovering/Resolving]
  - Speech disorder [Recovering/Resolving]
